FAERS Safety Report 17663492 (Version 3)
Quarter: 2020Q2

REPORT INFORMATION
  Report Type: Report from Study
  Country: None (occurrence: US)
  Receive Date: 20200414
  Receipt Date: 20200511
  Transmission Date: 20200713
  Serious: Yes (Hospitalization, Other)
  Sender: FDA-Public Use
  Company Number: US-ABBVIE-20K-163-3358364-00

PATIENT
  Age: 67 Year
  Sex: Female
  Weight: 83.54 kg

DRUGS (6)
  1. RINVOQ [Suspect]
     Active Substance: UPADACITINIB
     Indication: RHEUMATOID ARTHRITIS
     Route: 048
     Dates: start: 20200220, end: 20200312
  2. METOPROLOL. [Concomitant]
     Active Substance: METOPROLOL
     Indication: CARDIAC DISORDER
  3. DULOXETINE. [Concomitant]
     Active Substance: DULOXETINE
     Indication: ANTIDEPRESSANT THERAPY
  4. LORAZEPAM. [Concomitant]
     Active Substance: LORAZEPAM
     Indication: SLEEP DISORDER
  5. RINVOQ [Suspect]
     Active Substance: UPADACITINIB
     Route: 048
     Dates: start: 2020, end: 2020
  6. DULOXETINE. [Concomitant]
     Active Substance: DULOXETINE

REACTIONS (12)
  - Respiratory arrest [Recovered/Resolved]
  - White blood cell count increased [Recovering/Resolving]
  - Platelet count increased [Recovered/Resolved]
  - Brain abscess [Recovering/Resolving]
  - Tremor [Not Recovered/Not Resolved]
  - Diarrhoea [Recovered/Resolved]
  - Staphylococcal infection [Recovering/Resolving]
  - Epilepsy [Recovering/Resolving]
  - Suture related complication [Not Recovered/Not Resolved]
  - Depression [Recovered/Resolved]
  - Influenza [Recovered/Resolved]
  - C-reactive protein increased [Recovering/Resolving]

NARRATIVE: CASE EVENT DATE: 202003
